FAERS Safety Report 5104452-3 (Version None)
Quarter: 2006Q3

REPORT INFORMATION
  Report Type: 
  Country: None (occurrence: None)
  Receive Date: 20060914
  Receipt Date: 20060901
  Transmission Date: 20061208
  Serious: Yes (Other)
  Sender: FDA-Public Use
  Company Number: JP-BRISTOL-MYERS SQUIBB COMPANY-13504105

PATIENT
  Age: 48 Year
  Sex: Male

DRUGS (3)
  1. EFAVIRENZ [Suspect]
     Indication: HIV INFECTION
     Route: 048
     Dates: start: 20060801
  2. ZEFIX [Suspect]
     Indication: HEPATITIS B
     Route: 048
     Dates: start: 20060801
  3. KALETRA [Suspect]
     Indication: HIV INFECTION
     Route: 048
     Dates: start: 20060801

REACTIONS (1)
  - HYPERLACTACIDAEMIA [None]
